FAERS Safety Report 5190107-6 (Version None)
Quarter: 2006Q4

REPORT INFORMATION
  Report Type: 
  Country: None (occurrence: None)
  Receive Date: 20061222
  Receipt Date: 20061109
  Transmission Date: 20070319
  Serious: Yes (Life-Threatening, Hospitalization)
  Sender: FDA-Public Use
  Company Number: GB-BRISTOL-MYERS SQUIBB COMPANY-13577879

PATIENT
  Age: 69 Year
  Sex: Female

DRUGS (7)
  1. CETUXIMAB [Suspect]
     Indication: COLORECTAL CANCER
     Route: 041
     Dates: start: 20061005, end: 20061005
  2. OXALIPLATIN [Suspect]
     Indication: COLORECTAL CANCER
     Route: 041
     Dates: start: 20061005, end: 20061005
  3. CAPECITABINE [Suspect]
     Indication: COLORECTAL CANCER
     Route: 041
     Dates: start: 20060824, end: 20061005
  4. ONDANSETRON HCL [Concomitant]
     Route: 042
     Dates: start: 20060929, end: 20061005
  5. DEXAMETHASONE [Concomitant]
     Route: 042
     Dates: start: 20060929, end: 20061005
  6. CHLORPHENIRAMINE MALEATE [Concomitant]
     Route: 042
     Dates: start: 20060929, end: 20061005
  7. ACETAMINOPHEN [Concomitant]
     Route: 048
     Dates: start: 20060929, end: 20061005

REACTIONS (1)
  - SYNCOPE [None]
